FAERS Safety Report 13302698 (Version 1)
Quarter: 2017Q1

REPORT INFORMATION
  Report Type: Spontaneous
  Country: US (occurrence: US)
  Receive Date: 20170307
  Receipt Date: 20170307
  Transmission Date: 20170428
  Serious: No
  Sender: FDA-Public Use
  Company Number: US-HERITAGE PHARMACEUTICALS-2017HTG00019

PATIENT
  Age: 60 Year
  Sex: Female
  Weight: 88.89 kg

DRUGS (5)
  1. PREMARIN [Concomitant]
     Active Substance: ESTROGENS, CONJUGATED
     Dosage: UNK MG, UNK
     Route: 048
     Dates: start: 1986
  2. HYDROXYZINE [Suspect]
     Active Substance: HYDROXYZINE HYDROCHLORIDE
     Dosage: UNK
     Dates: start: 201701
  3. FISH OIL WITH VITAMIN D [Concomitant]
  4. LEVOTHYROXINE (LANNETT PHARMACEUTICAL) [Concomitant]
     Dosage: 5 TABLETS, EVERY 48 HOURS
     Dates: start: 2015
  5. HYDROXYZINE [Suspect]
     Active Substance: HYDROXYZINE HYDROCHLORIDE
     Indication: BLADDER PAIN
     Dosage: UNK, AS NEEDED
     Route: 048
     Dates: start: 201701, end: 201701

REACTIONS (9)
  - Urethral spasm [Recovered/Resolved]
  - Chills [Recovered/Resolved]
  - Bladder spasm [Recovered/Resolved]
  - Off label use [Recovered/Resolved]
  - Malaise [Recovered/Resolved]
  - Chemical injury [Recovered/Resolved]
  - Dyspepsia [Unknown]
  - Pelvic pain [Recovered/Resolved]
  - Bladder irritation [Recovered/Resolved]

NARRATIVE: CASE EVENT DATE: 201701
